FAERS Safety Report 23938493 (Version 1)
Quarter: 2024Q2

REPORT INFORMATION
  Report Type: Spontaneous
  Country: IT (occurrence: IT)
  Receive Date: 20240604
  Receipt Date: 20240604
  Transmission Date: 20240715
  Serious: Yes (Other)
  Sender: FDA-Public Use
  Company Number: None

PATIENT
  Age: 51 Year
  Sex: Female

DRUGS (3)
  1. ERELZI [Suspect]
     Active Substance: ETANERCEPT-SZZS
     Indication: Rheumatoid arthritis
     Dosage: 50.000MG
     Route: 058
     Dates: start: 20220711, end: 20240515
  2. BONASOL [Concomitant]
     Indication: Product used for unknown indication
     Dosage: 1 DF
     Route: 048
     Dates: end: 20240521
  3. ASPIRIN [Concomitant]
     Active Substance: ASPIRIN
     Indication: Product used for unknown indication
     Dosage: 100 MG, QD
     Route: 048
     Dates: end: 20240527

REACTIONS (5)
  - Antiphospholipid antibodies positive [Recovering/Resolving]
  - Antinuclear antibody positive [Recovering/Resolving]
  - DNA antibody [Recovering/Resolving]
  - Rheumatoid arthritis [Recovering/Resolving]
  - Drug ineffective [Recovering/Resolving]

NARRATIVE: CASE EVENT DATE: 20240521
